FAERS Safety Report 6327686-9 (Version None)
Quarter: 2009Q3

REPORT INFORMATION
  Report Type: 
  Country: None (occurrence: None)
  Receive Date: 20090825
  Receipt Date: 20090820
  Transmission Date: 20100115
  Serious: Yes (Death, Hospitalization, Other)
  Sender: FDA-Public Use
  Company Number: PHHY2009MY35288

PATIENT
  Age: 45 Year
  Sex: Male

DRUGS (5)
  1. CLOFAZIMINE [Suspect]
     Indication: ERYTHEMA NODOSUM LEPROSUM
     Dosage: 50 MG, UNK
  2. CLOFAZIMINE [Suspect]
     Indication: LEPROMATOUS LEPROSY
     Dosage: 100 MG, UNK
  3. DAPSONE [Concomitant]
     Indication: ERYTHEMA NODOSUM LEPROSUM
     Dosage: 100 MG, UNK
  4. RIFAMPICIN [Concomitant]
     Dosage: 600 MG, UNK
  5. PREDNISOLONE [Concomitant]
     Dosage: 20 MG, TID

REACTIONS (15)
  - GANGRENE [None]
  - HAEMORRHAGIC INFARCTION [None]
  - HYPOALBUMINAEMIA [None]
  - HYPOCHROMIC ANAEMIA [None]
  - LIVER PALPABLE SUBCOSTAL [None]
  - NECROSIS [None]
  - PLATELET COUNT DECREASED [None]
  - PURULENT DISCHARGE [None]
  - RASH PAPULAR [None]
  - RED BLOOD CELL SEDIMENTATION RATE INCREASED [None]
  - SCROTAL GANGRENE [None]
  - SEPSIS [None]
  - SKIN LESION [None]
  - SKIN PLAQUE [None]
  - SKIN ULCER [None]
